FAERS Safety Report 15432154 (Version 3)
Quarter: 2018Q4

REPORT INFORMATION
  Report Type: Spontaneous
  Country: CZ (occurrence: CZ)
  Receive Date: 20180926
  Receipt Date: 20181027
  Transmission Date: 20190204
  Serious: Yes (Hospitalization, Other)
  Sender: FDA-Public Use
  Company Number: CZ-009507513-1809CZE007067

PATIENT
  Age: 75 Year
  Sex: Male

DRUGS (10)
  1. FINPROS [Concomitant]
     Dosage: 5 MG, UNK
  2. REBETOL [Suspect]
     Active Substance: RIBAVIRIN
     Dosage: 600 MG, UNK
     Route: 065
     Dates: end: 20161215
  3. REBETOL [Suspect]
     Active Substance: RIBAVIRIN
     Dosage: UNK MG, UNK
     Route: 065
     Dates: start: 20161222, end: 201612
  4. MIRZATEN [Concomitant]
     Active Substance: MIRTAZAPINE
     Dosage: 30 MG, UNK
  5. DETRALEX [Concomitant]
     Active Substance: DIOSMIN\HESPERIDIN
  6. HARVONI [Suspect]
     Active Substance: LEDIPASVIR\SOFOSBUVIR
     Indication: CHRONIC HEPATITIS C
     Dosage: UNK
     Route: 048
     Dates: start: 20161124, end: 20170105
  7. HELICID (OMEPRAZOLE SODIUM) [Concomitant]
  8. REBETOL [Suspect]
     Active Substance: RIBAVIRIN
     Indication: CHRONIC HEPATITIS C
     Dosage: 1200 MG UNK
     Route: 065
     Dates: start: 20161124
  9. IMMUNATE STIM PLUS [Concomitant]
     Active Substance: ANTIHEMOPHILIC FACTOR HUMAN
     Indication: HAEMORRHAGE
  10. TAMSULOSIN HYDROCHLORIDE. [Concomitant]
     Active Substance: TAMSULOSIN HYDROCHLORIDE

REACTIONS (10)
  - Headache [Recovered/Resolved]
  - Dementia [Unknown]
  - Feeling abnormal [Recovered/Resolved]
  - Fatigue [Unknown]
  - Psychiatric decompensation [Unknown]
  - Abnormal behaviour [Recovered/Resolved]
  - Suicidal ideation [Recovered/Resolved]
  - Anaemia [Recovered/Resolved]
  - Confusional state [Recovered/Resolved]
  - Hallucination [Unknown]

NARRATIVE: CASE EVENT DATE: 20161209
